FAERS Safety Report 5705756-3 (Version None)
Quarter: 2008Q2

REPORT INFORMATION
  Report Type: 
  Country: None (occurrence: None)
  Receive Date: 20080414
  Receipt Date: 20080414
  Transmission Date: 20081010
  Serious: No
  Sender: FDA-Public Use
  Company Number: None

PATIENT
  Age: 31 Year
  Sex: Female
  Weight: 72.5755 kg

DRUGS (2)
  1. SINGULAIR [Suspect]
     Indication: ASTHMA
     Dosage: 10 MG ONCE A DAY ORALLY
     Route: 048
  2. SINGULAIR [Suspect]
     Indication: SINUSITIS
     Dosage: 10 MG ONCE A DAY ORALLY
     Route: 048

REACTIONS (2)
  - ABNORMAL BEHAVIOUR [None]
  - MOOD SWINGS [None]
